FAERS Safety Report 7528070-2 (Version None)
Quarter: 2011Q2

REPORT INFORMATION
  Report Type: 
  Country: None (occurrence: None)
  Receive Date: 20110607
  Receipt Date: 20110525
  Transmission Date: 20111010
  Serious: Yes (Other)
  Sender: FDA-Public Use
  Company Number: BR-BAYER-2011-045396

PATIENT
  Sex: Female
  Weight: 64 kg

DRUGS (2)
  1. YASMIN [Suspect]
     Indication: CONTRACEPTION
     Dosage: 21DAYS WITH 7 DAYS BREAK
     Route: 048
  2. YASMIN [Suspect]
     Indication: MENSTRUAL CYCLE MANAGEMENT

REACTIONS (5)
  - HYPOAESTHESIA [None]
  - HEARING IMPAIRED [None]
  - HEADACHE [None]
  - VISUAL IMPAIRMENT [None]
  - DIZZINESS [None]
